FAERS Safety Report 5621058-8 (Version None)
Quarter: 2008Q1

REPORT INFORMATION
  Report Type: 
  Country: None (occurrence: None)
  Receive Date: 20080208
  Receipt Date: 20080201
  Transmission Date: 20080703
  Serious: Yes (Other)
  Sender: FDA-Public Use
  Company Number: DE-PFIZER INC-2008011267

PATIENT
  Age: 39 Year
  Sex: Female

DRUGS (2)
  1. DEPO-CLINOVIR [Suspect]
     Indication: ENDOMETRIOSIS
     Route: 030
  2. DEPO-CLINOVIR [Suspect]
     Dosage: FREQ:SECOND LAST INJECTION
     Route: 030
     Dates: start: 20071001, end: 20071001

REACTIONS (3)
  - INJECTION SITE HAEMATOMA [None]
  - OVARIAN CYST [None]
  - PELVIC PAIN [None]
